FAERS Safety Report 25736460 (Version 1)
Quarter: 2025Q3

REPORT INFORMATION
  Report Type: Spontaneous
  Country: EU (occurrence: EU)
  Receive Date: 20250828
  Receipt Date: 20250828
  Transmission Date: 20251021
  Serious: Yes (Other)
  Sender: BAYER HEALTHCARE PHARMACEUTICALS INC.
  Company Number: None

PATIENT
  Age: 58 Year
  Sex: Male
  Weight: 65 kg

DRUGS (1)
  1. ULTRAVIST [Suspect]
     Active Substance: IOPROMIDE
     Dates: start: 20250807, end: 20250807

REACTIONS (2)
  - Urticaria [Recovered/Resolved]
  - Conjunctival hyperaemia [Recovered/Resolved]

NARRATIVE: CASE EVENT DATE: 20250807
